FAERS Safety Report 9788215 (Version 2)
Quarter: 2014Q1

REPORT INFORMATION
  Report Type: Spontaneous
  Country: JP (occurrence: JP)
  Receive Date: 20131230
  Receipt Date: 20140103
  Transmission Date: 20141002
  Serious: Yes (Other)
  Sender: FDA-Public Use
  Company Number: JP-SA-2013SA134877

PATIENT
  Age: 57 Year
  Sex: Female

DRUGS (3)
  1. IRBETAN [Suspect]
     Indication: HYPERTENSION
     Route: 048
  2. OTHER ANTIHYPERTENSIVES [Suspect]
     Indication: HYPERTENSION
     Route: 065
  3. DIURETICS [Suspect]
     Indication: HYPERTENSION
     Route: 065

REACTIONS (2)
  - Hyponatraemia [Unknown]
  - Hypochloraemia [Unknown]
